FAERS Safety Report 6407660-4 (Version None)
Quarter: 2009Q4

REPORT INFORMATION
  Report Type: 
  Country: None (occurrence: None)
  Receive Date: 20091020
  Receipt Date: 20091014
  Transmission Date: 20100525
  Serious: Yes (Death, Hospitalization)
  Sender: FDA-Public Use
  Company Number: PHEH2009US05896

PATIENT
  Sex: Female
  Weight: 51.701 kg

DRUGS (10)
  1. EXJADE [Suspect]
     Indication: MYELODYSPLASTIC SYNDROME
     Dosage: 1500 MG, QD
     Route: 048
     Dates: start: 20060601
  2. EXJADE [Suspect]
     Indication: IRON OVERLOAD
  3. DEFERASIROX [Concomitant]
     Dosage: 500 MG, QID
     Route: 048
  4. HEPARIN [Concomitant]
     Dosage: 3 CC EACH DAILY FOR 2 PICC
  5. ACETAMINOPHEN [Concomitant]
     Dosage: 1000 MG BEFORE BLOOD TRANSFUSION
     Route: 048
  6. BENADRYL ^ACHE^ [Concomitant]
     Dosage: 25 MG BEFORE PLATELET TRANSFUSION
     Route: 048
  7. HYDROXYZINE [Concomitant]
     Dosage: 25 MG QID PRN
     Route: 048
  8. OMEPRAZOLE [Concomitant]
     Indication: PRURITUS
     Dosage: 20 MG QD PRN FOR ITCH
     Route: 048
  9. PROMETHAZINE [Concomitant]
     Dosage: 25 MG AS DIRECTED BY PHYSICIAN
  10. HYDROXYUREA [Concomitant]
     Dosage: 1000 MG, QD

REACTIONS (27)
  - ACUTE LEUKAEMIA [None]
  - BACK PAIN [None]
  - BASOPHIL COUNT INCREASED [None]
  - BLAST CELL COUNT INCREASED [None]
  - BLOOD ALBUMIN DECREASED [None]
  - BLOOD ALKALINE PHOSPHATASE INCREASED [None]
  - BLOOD BILIRUBIN INCREASED [None]
  - BLOOD CALCIUM DECREASED [None]
  - EOSINOPHIL COUNT INCREASED [None]
  - HAEMATOCRIT DECREASED [None]
  - HAEMOGLOBIN DECREASED [None]
  - HYPOTENSION [None]
  - LYMPHOCYTE COUNT DECREASED [None]
  - MALIGNANT NEOPLASM PROGRESSION [None]
  - MEAN PLATELET VOLUME INCREASED [None]
  - METAMYELOCYTE COUNT INCREASED [None]
  - MONOCYTE COUNT INCREASED [None]
  - NEUTROPENIC INFECTION [None]
  - NEUTROPHIL COUNT INCREASED [None]
  - OEDEMA PERIPHERAL [None]
  - PAIN IN EXTREMITY [None]
  - PLATELET COUNT DECREASED [None]
  - PRODUCTIVE COUGH [None]
  - RED BLOOD CELL COUNT DECREASED [None]
  - RED CELL DISTRIBUTION WIDTH INCREASED [None]
  - REFRACTORY ANAEMIA [None]
  - WHITE BLOOD CELL COUNT INCREASED [None]
